FAERS Safety Report 8313475-2 (Version None)
Quarter: 2012Q2

REPORT INFORMATION
  Report Type: 
  Country: None (occurrence: None)
  Receive Date: 20120426
  Receipt Date: 20120420
  Transmission Date: 20120825
  Serious: Yes (Other)
  Sender: FDA-Public Use
  Company Number: US-JNJFOC-20120410070

PATIENT
  Sex: Female
  Weight: 54.43 kg

DRUGS (2)
  1. METHOTREXATE [Suspect]
     Indication: RHEUMATOID ARTHRITIS
     Route: 048
  2. SIMPONI [Suspect]
     Indication: RHEUMATOID ARTHRITIS
     Route: 058
     Dates: start: 20110401

REACTIONS (6)
  - CARBOHYDRATE ANTIGEN 125 INCREASED [None]
  - INJECTION SITE SWELLING [None]
  - DRUG DOSE OMISSION [None]
  - STOMATITIS [None]
  - WEIGHT DECREASED [None]
  - WRONG TECHNIQUE IN DRUG USAGE PROCESS [None]
